FAERS Safety Report 15309253 (Version 1)
Quarter: 2018Q3

REPORT INFORMATION
  Report Type: Spontaneous
  Country: US (occurrence: US)
  Receive Date: 20180811
  Receipt Date: 20180811
  Transmission Date: 20181010
  Serious: Yes (Disabling)
  Sender: FDA-Public Use
  Company Number: None

PATIENT
  Age: 28 Year
  Sex: Female
  Weight: 59 kg

DRUGS (1)
  1. LARIAM [Suspect]
     Active Substance: MEFLOQUINE HYDROCHLORIDE
     Indication: MALARIA PROPHYLAXIS
     Dosage: ?          OTHER FREQUENCY:WEEKLY;?
     Route: 048
     Dates: start: 20030927, end: 20040401

REACTIONS (8)
  - Cognitive disorder [None]
  - Anxiety [None]
  - Fine motor skill dysfunction [None]
  - Disorientation [None]
  - Abnormal dreams [None]
  - Impaired work ability [None]
  - Nightmare [None]
  - Visual impairment [None]

NARRATIVE: CASE EVENT DATE: 20030927
